FAERS Safety Report 25112185 (Version 2)
Quarter: 2025Q2

REPORT INFORMATION
  Report Type: Report from Study
  Country: EG (occurrence: EG)
  Receive Date: 20250324
  Receipt Date: 20250418
  Transmission Date: 20250717
  Serious: Yes (Other)
  Sender: ABBVIE
  Company Number: EG-ABBVIE-6176024

PATIENT
  Age: 42 Year
  Sex: Female
  Weight: 105 kg

DRUGS (12)
  1. RINVOQ [Suspect]
     Active Substance: UPADACITINIB
     Indication: Rheumatoid arthritis
     Dosage: 1 TABLET?FORM STRENGTH: 15 MG
     Route: 048
     Dates: start: 202503, end: 20250324
  2. RINVOQ [Suspect]
     Active Substance: UPADACITINIB
     Indication: Rheumatoid arthritis
     Dosage: 2 TABLET?FORM STRENGTH: 15 MG
     Route: 048
     Dates: start: 20250324
  3. RIVAROXABAN [Concomitant]
     Active Substance: RIVAROXABAN
     Indication: Anticoagulant therapy
     Route: 048
     Dates: start: 202503
  4. Coloverin [Concomitant]
     Indication: Product used for unknown indication
     Route: 048
  5. Gastrobiotic [Concomitant]
     Indication: Product used for unknown indication
  6. LEVOFLOXACIN [Concomitant]
     Active Substance: LEVOFLOXACIN
     Indication: Product used for unknown indication
  7. METHOTREXATE [Concomitant]
     Active Substance: METHOTREXATE
     Indication: Rheumatoid arthritis
     Dates: start: 202503
  8. IVABRADINE [Concomitant]
     Active Substance: IVABRADINE
     Indication: Tachycardia
  9. Cervitam [Concomitant]
     Indication: Product used for unknown indication
  10. CORTISONE [Concomitant]
     Active Substance: CORTISONE
     Indication: Product used for unknown indication
  11. NEXIUM [Concomitant]
     Active Substance: ESOMEPRAZOLE MAGNESIUM
     Indication: Product used for unknown indication
  12. PENTASA [Concomitant]
     Active Substance: MESALAMINE
     Indication: Product used for unknown indication

REACTIONS (18)
  - Pulmonary fibrosis [Not Recovered/Not Resolved]
  - Dizziness [Recovered/Resolved]
  - Dehydration [Unknown]
  - Red blood cell sedimentation rate increased [Not Recovered/Not Resolved]
  - Alopecia [Recovered/Resolved]
  - Balance disorder [Unknown]
  - C-reactive protein increased [Not Recovered/Not Resolved]
  - Nasopharyngitis [Recovered/Resolved]
  - Mobility decreased [Not Recovered/Not Resolved]
  - Rheumatoid arthritis [Not Recovered/Not Resolved]
  - Dyspnoea [Not Recovered/Not Resolved]
  - Tachycardia [Recovering/Resolving]
  - Blood glucose decreased [Recovered/Resolved with Sequelae]
  - Vomiting [Recovered/Resolved]
  - Diarrhoea [Recovered/Resolved]
  - Hypotension [Recovered/Resolved]
  - Weight decreased [Unknown]
  - Fall [Recovered/Resolved]

NARRATIVE: CASE EVENT DATE: 20240801
